FAERS Safety Report 9456517 (Version 1)
Quarter: 2013Q3

REPORT INFORMATION
  Report Type: Spontaneous
  Country: US (occurrence: US)
  Receive Date: 20130813
  Receipt Date: 20130813
  Transmission Date: 20140515
  Serious: Yes (Other)
  Sender: FDA-Public Use
  Company Number: US-PFIZER INC-2013231794

PATIENT
  Sex: Female

DRUGS (6)
  1. LIPITOR [Suspect]
     Dosage: UNK
  2. CELEBREX [Suspect]
     Dosage: UNK
  3. IRBESARTAN [Suspect]
     Dosage: UNK
  4. XALATAN [Suspect]
     Dosage: UNK
  5. ZOLOFT [Suspect]
     Dosage: UNK
  6. DETROL LA [Suspect]
     Dosage: 4 MG, UNK

REACTIONS (4)
  - Hypoacusis [Unknown]
  - Malaise [Unknown]
  - Cough [Unknown]
  - Drug ineffective [Unknown]
